FAERS Safety Report 14109791 (Version 1)
Quarter: 2017Q4

REPORT INFORMATION
  Report Type: Spontaneous
  Country: US (occurrence: US)
  Receive Date: 20171020
  Receipt Date: 20171020
  Transmission Date: 20180321
  Serious: No
  Sender: FDA-Public Use
  Company Number: US-TEVA-707001USA

PATIENT
  Sex: Female
  Weight: 104.42 kg

DRUGS (2)
  1. ESTRADIOL. [Suspect]
     Active Substance: ESTRADIOL
     Dosage: .5 MILLIGRAM DAILY;
     Route: 048
     Dates: start: 2015
  2. PREMARIN [Suspect]
     Active Substance: ESTROGENS, CONJUGATED
     Indication: HORMONE THERAPY
     Dates: end: 2015

REACTIONS (1)
  - Alopecia [Not Recovered/Not Resolved]
